FAERS Safety Report 5790357-1 (Version None)
Quarter: 2008Q2

REPORT INFORMATION
  Report Type: 
  Country: None (occurrence: None)
  Receive Date: 20080626
  Receipt Date: 20080425
  Transmission Date: 20081010
  Serious: No
  Sender: FDA-Public Use
  Company Number: A0724810A

PATIENT
  Age: 58 Year
  Sex: Female

DRUGS (5)
  1. ALLI [Suspect]
     Dates: start: 20080422
  2. NORVASC [Concomitant]
  3. ESTROVEN [Concomitant]
  4. CALTRATE [Concomitant]
  5. ONE A DAY WOMEN'S FORMULA [Concomitant]

REACTIONS (15)
  - ABDOMINAL PAIN UPPER [None]
  - CHEST PAIN [None]
  - CONSTIPATION [None]
  - DRY EYE [None]
  - DRY MOUTH [None]
  - ERUCTATION [None]
  - EYE PAIN [None]
  - FAECAL VOLUME DECREASED [None]
  - FAECES HARD [None]
  - FEELING ABNORMAL [None]
  - FLATULENCE [None]
  - HEADACHE [None]
  - HEARING IMPAIRED [None]
  - NOCTURIA [None]
  - VISION BLURRED [None]
